FAERS Safety Report 19460086 (Version 2)
Quarter: 2021Q4

REPORT INFORMATION
  Report Type: Report from Study
  Country: CA (occurrence: CA)
  Receive Date: 20210625
  Receipt Date: 20211214
  Transmission Date: 20220303
  Serious: Yes (Hospitalization, Other)
  Sender: FDA-Public Use
  Company Number: CA-JNJFOC-20210401091

PATIENT
  Age: 93 Year
  Sex: Female

DRUGS (2)
  1. REMICADE [Suspect]
     Active Substance: INFLIXIMAB
     Indication: Ankylosing spondylitis
     Dosage: ON 17-JUN-2021, THE PATIENT RECEIVED 90TH INFLIXIMAB INFUSION FOR DOSE OF 200 MG ONCE IN 8 WEEK.
     Route: 042
     Dates: start: 20080121
  2. REMICADE [Suspect]
     Active Substance: INFLIXIMAB
     Route: 042
     Dates: start: 20160530

REACTIONS (5)
  - Hospitalisation [Unknown]
  - Staphylococcal infection [Unknown]
  - Off label use [Unknown]
  - Product use issue [Unknown]
  - Inappropriate schedule of product administration [Unknown]

NARRATIVE: CASE EVENT DATE: 20210101
